FAERS Safety Report 4795734-3 (Version None)
Quarter: 2005Q3

REPORT INFORMATION
  Report Type: 
  Country: None (occurrence: None)
  Receive Date: 20050916
  Receipt Date: 20050713
  Transmission Date: 20060218
  Serious: Yes (Hospitalization)
  Sender: FDA-Public Use
  Company Number: US-JNJFOC-20050702723

PATIENT
  Age: 34 Year
  Sex: Female

DRUGS (5)
  1. TOPAMAX [Suspect]
     Indication: CONVULSION
     Dosage: 300 MG, IN 1 DAY
     Dates: end: 20050712
  2. VICODIN [Concomitant]
  3. ELAVIL [Concomitant]
  4. NAPROXEN [Concomitant]
  5. ZANTAC [Concomitant]

REACTIONS (3)
  - HYPERTHERMIA [None]
  - MENTAL STATUS CHANGES [None]
  - URINARY TRACT INFECTION [None]
